FAERS Safety Report 9857407 (Version 1)
Quarter: 2014Q1

REPORT INFORMATION
  Report Type: Report from Study
  Country: FR (occurrence: FR)
  Receive Date: 20140131
  Receipt Date: 20140131
  Transmission Date: 20141002
  Serious: Yes (Hospitalization)
  Sender: FDA-Public Use
  Company Number: FR-ROCHE-1339103

PATIENT
  Sex: Female

DRUGS (11)
  1. RITUXIMAB [Suspect]
     Indication: RHEUMATOID ARTHRITIS
     Dosage: DAY 1
     Route: 042
     Dates: start: 20060117
  2. RITUXIMAB [Suspect]
     Dosage: DAY 15
     Route: 042
     Dates: start: 20060131
  3. RITUXIMAB [Suspect]
     Route: 042
     Dates: start: 20080228
  4. RITUXIMAB [Suspect]
     Dosage: DAY 1
     Route: 042
     Dates: start: 20061013
  5. RITUXIMAB [Suspect]
     Dosage: DAY 15
     Route: 042
     Dates: start: 20061027
  6. METHOTREXATE [Concomitant]
     Route: 065
  7. CORTANCYL [Concomitant]
     Dosage: PER DAY
     Route: 065
  8. CORTANCYL [Concomitant]
     Dosage: PER DAY
     Route: 065
  9. CORTANCYL [Concomitant]
     Dosage: PER DAY
     Route: 065
  10. METHYLPREDNISOLONE [Concomitant]
     Route: 065
  11. INSULIN [Concomitant]

REACTIONS (6)
  - Hypoglycaemia [Recovered/Resolved]
  - Urinary tract infection [Recovered/Resolved]
  - Diabetes mellitus inadequate control [Recovered/Resolved]
  - Depression [Not Recovered/Not Resolved]
  - Cystitis [Recovered/Resolved]
  - Back pain [Recovered/Resolved]
